FAERS Safety Report 10979607 (Version 2)
Quarter: 2015Q2

REPORT INFORMATION
  Report Type: Spontaneous
  Country: BR (occurrence: BR)
  Receive Date: 20150402
  Receipt Date: 20150505
  Transmission Date: 20150821
  Serious: Yes (Other)
  Sender: FDA-Public Use
  Company Number: BR-PFIZER INC-2015110573

PATIENT
  Sex: Female

DRUGS (1)
  1. ZOLOFT [Suspect]
     Active Substance: SERTRALINE HYDROCHLORIDE
     Indication: DEPRESSION
     Dosage: 150 MG, DAILY (3 TABLETS OF STRENGTH 50 MG)
     Dates: start: 2008

REACTIONS (3)
  - Intervertebral disc degeneration [Unknown]
  - Anxiety [Unknown]
  - Neuromyelitis optica [Unknown]

NARRATIVE: CASE EVENT DATE: 2009
